FAERS Safety Report 11585369 (Version 1)
Quarter: 2015Q4

REPORT INFORMATION
  Report Type: Spontaneous
  Country: CN (occurrence: CN)
  Receive Date: 20151001
  Receipt Date: 20151001
  Transmission Date: 20160304
  Serious: Yes (Life-Threatening, Hospitalization)
  Sender: FDA-Public Use
  Company Number: CN-PERRIGO-15CN010031

PATIENT
  Age: 25 Year
  Sex: Female

DRUGS (1)
  1. ACETAMINOPHEN 650MG ER 544 [Suspect]
     Active Substance: ACETAMINOPHEN
     Indication: HEADACHE
     Dosage: 3000 MG, QD
     Route: 048

REACTIONS (8)
  - Rhabdomyolysis [Recovered/Resolved]
  - Myalgia [Recovered/Resolved]
  - Renal tubular acidosis [Recovered/Resolved]
  - Gait disturbance [Recovered/Resolved]
  - Tubulointerstitial nephritis [Recovered/Resolved]
  - Hypokalaemia [Recovered/Resolved]
  - Autoimmune haemolytic anaemia [Recovered/Resolved]
  - Muscular weakness [Recovered/Resolved]
